FAERS Safety Report 24467631 (Version 1)
Quarter: 2024Q4

REPORT INFORMATION
  Report Type: Report from Study
  Country: US (occurrence: US)
  Receive Date: 20241018
  Receipt Date: 20241018
  Transmission Date: 20250115
  Serious: No
  Sender: ROCHE
  Company Number: US-ROCHE-3577254

PATIENT
  Age: 53 Year
  Sex: Female
  Weight: 89.36 kg

DRUGS (1)
  1. XOLAIR [Suspect]
     Active Substance: OMALIZUMAB
     Indication: Idiopathic urticaria
     Route: 058

REACTIONS (5)
  - Rash [Unknown]
  - Dry skin [Unknown]
  - Psoriasis [Unknown]
  - Impetigo [Unknown]
  - Pain [Unknown]
